FAERS Safety Report 18134261 (Version 1)
Quarter: 2020Q3

REPORT INFORMATION
  Report Type: Spontaneous
  Country: US (occurrence: US)
  Receive Date: 20200807
  Receipt Date: 20200807
  Transmission Date: 20201103
  Serious: No
  Sender: FDA-Public Use
  Company Number: None

PATIENT
  Age: 74 Year
  Sex: Male

DRUGS (8)
  1. MULTIPLE MYELOMA [Concomitant]
  2. CHEMOTHERAPY INDUCED PERIPHERAL NEUROPATHY [Concomitant]
  3. SECONDARY HYPERPARATHYROIDISM, RENAL ORIGIN [Concomitant]
  4. CANCER METASTATIC TO BONE [Concomitant]
  5. ESRD ON DIALYSIS [Concomitant]
  6. HYPOTHYROIDISM [Concomitant]
  7. PANCREATIC MASS [Concomitant]
  8. POMALYST [Suspect]
     Active Substance: POMALIDOMIDE
     Indication: PLASMA CELL MYELOMA
     Route: 048
     Dates: start: 20180413

REACTIONS (2)
  - Refusal of treatment by patient [None]
  - Pulmonary embolism [None]

NARRATIVE: CASE EVENT DATE: 20200702
